FAERS Safety Report 5220015-3 (Version None)
Quarter: 2007Q1

REPORT INFORMATION
  Report Type: 
  Country: None (occurrence: None)
  Receive Date: 20070124
  Receipt Date: 20070124
  Transmission Date: 20070707
  Serious: Yes (Other)
  Sender: FDA-Public Use
  Company Number: None

PATIENT
  Age: 84 Year
  Sex: Male
  Weight: 55.3 kg

DRUGS (12)
  1. LATANOPROST [Suspect]
  2. OMEPRAZOLE [Concomitant]
  3. AZITHROMYCIN [Concomitant]
  4. GG 600/PSEUDOEPHEDRINE [Concomitant]
  5. DERMA CERIN TOP CREAM [Concomitant]
  6. DORZOLAMIDE HCL [Concomitant]
  7. HCTZ 25/TRIAMTERENE [Concomitant]
  8. HYPROMELLOSE [Concomitant]
  9. GLYBURIDE [Concomitant]
  10. MECLIZINE HCL [Concomitant]
  11. LISINOPRIL [Concomitant]
  12. FLUOCINOLONE ACETONIDE [Concomitant]

REACTIONS (1)
  - EYE SWELLING [None]
